FAERS Safety Report 11483369 (Version 1)
Quarter: 2015Q3

REPORT INFORMATION
  Report Type: Spontaneous
  Country: US (occurrence: US)
  Receive Date: 20150903
  Receipt Date: 20150903
  Transmission Date: 20151125
  Serious: No
  Sender: FDA-Public Use
  Company Number: US-ELI_LILLY_AND_COMPANY-US201206005753

PATIENT
  Age: 58 Year
  Sex: Female

DRUGS (3)
  1. CYMBALTA [Suspect]
     Active Substance: DULOXETINE HYDROCHLORIDE
     Indication: DEPRESSION
     Dosage: 30 MG, UNK
     Dates: start: 2004
  2. CYMBALTA [Suspect]
     Active Substance: DULOXETINE HYDROCHLORIDE
     Dosage: 60 MG, QD
  3. CYMBALTA [Suspect]
     Active Substance: DULOXETINE HYDROCHLORIDE
     Dosage: 90 MG, UNK

REACTIONS (11)
  - Diarrhoea [Unknown]
  - Aggression [Unknown]
  - Concussion [Unknown]
  - Withdrawal syndrome [Unknown]
  - Fibromyalgia [Unknown]
  - Anxiety [Unknown]
  - Dizziness [Unknown]
  - Memory impairment [Unknown]
  - Fall [Unknown]
  - Condition aggravated [Unknown]
  - Insomnia [Unknown]
